FAERS Safety Report 19457881 (Version 2)
Quarter: 2021Q3

REPORT INFORMATION
  Report Type: Spontaneous
  Country: US (occurrence: US)
  Receive Date: 20210624
  Receipt Date: 20210903
  Transmission Date: 20211014
  Serious: No
  Sender: FDA-Public Use
  Company Number: US-DECIPHERA PHARMACEUTICALS LLC-2021US000352

PATIENT
  Sex: Female
  Weight: 113.3 kg

DRUGS (3)
  1. QINLOCK [Suspect]
     Active Substance: RIPRETINIB
     Indication: GASTROINTESTINAL STROMAL TUMOUR
     Dosage: 150 MILLIGRAM, QD
     Route: 048
  2. QINLOCK [Suspect]
     Active Substance: RIPRETINIB
     Dosage: UNK
     Route: 048
     Dates: start: 202107, end: 202108
  3. QINLOCK [Suspect]
     Active Substance: RIPRETINIB
     Dosage: 100 UNK
     Route: 048
     Dates: start: 20210802

REACTIONS (14)
  - Palmar-plantar erythrodysaesthesia syndrome [Recovering/Resolving]
  - Fatigue [Recovering/Resolving]
  - Vitamin C deficiency [Recovering/Resolving]
  - Dizziness [Recovering/Resolving]
  - Pigmentation disorder [Not Recovered/Not Resolved]
  - Nerve injury [Unknown]
  - Alopecia [Recovering/Resolving]
  - Pruritus [Recovering/Resolving]
  - Rash [Recovering/Resolving]
  - Cyst [Unknown]
  - Dry skin [Not Recovered/Not Resolved]
  - Skin disorder [Not Recovered/Not Resolved]
  - Skin burning sensation [Recovering/Resolving]
  - Ear discomfort [Unknown]
